FAERS Safety Report 11291421 (Version 1)
Quarter: 2015Q3

REPORT INFORMATION
  Report Type: Spontaneous
  Country: US (occurrence: None)
  Receive Date: 20150720
  Receipt Date: 20150720
  Transmission Date: 20151125
  Serious: No
  Sender: FDA-Public Use
  Company Number: None

PATIENT
  Age: 53 Year
  Sex: Male
  Weight: 100.7 kg

DRUGS (1)
  1. GABLOFEN [Suspect]
     Active Substance: BACLOFEN

REACTIONS (2)
  - Catheter site granuloma [None]
  - Product substitution issue [None]

NARRATIVE: CASE EVENT DATE: 20150715
